FAERS Safety Report 6239310-4 (Version None)
Quarter: 2009Q2

REPORT INFORMATION
  Report Type: 
  Country: None (occurrence: None)
  Receive Date: 20090622
  Receipt Date: 20090612
  Transmission Date: 20091009
  Serious: Yes (Other)
  Sender: FDA-Public Use
  Company Number: PHHY2009NO23317

PATIENT
  Sex: Female

DRUGS (5)
  1. ACLASTA [Suspect]
     Indication: OSTEOPOROSIS
     Dosage: 5 MG INTRAVENOUSLY PER YEAR
     Route: 042
     Dates: start: 20080625, end: 20090501
  2. ACETAMINOPHEN [Concomitant]
     Indication: BACK PAIN
     Dosage: 500 MG, UNK
     Route: 048
  3. IBUX [Concomitant]
     Indication: BACK PAIN
     Dosage: 600 MG PER DAY
     Route: 048
  4. NEXIUM [Concomitant]
     Indication: GASTROOESOPHAGEAL REFLUX DISEASE
     Dosage: 40 MG PER DAY
     Route: 048
  5. CALCIUM [Concomitant]
     Dosage: 1000 MG DAILY

REACTIONS (2)
  - OSTEONECROSIS [None]
  - TOOTH EXTRACTION [None]
